FAERS Safety Report 6102077-4 (Version None)
Quarter: 2009Q1

REPORT INFORMATION
  Report Type: 
  Country: None (occurrence: None)
  Receive Date: 20090304
  Receipt Date: 20090220
  Transmission Date: 20090719
  Serious: Yes (Other)
  Sender: FDA-Public Use
  Company Number: JP-PFIZER INC-2009174556

PATIENT

DRUGS (2)
  1. SULPERAZON [Suspect]
     Indication: PNEUMONIA
     Dosage: UNK
     Route: 042
     Dates: start: 20090205, end: 20090220
  2. KYORIN AP 2 [Concomitant]
     Indication: PAIN
     Route: 048
     Dates: start: 20090204, end: 20090218

REACTIONS (1)
  - CONVULSION [None]
